FAERS Safety Report 23277398 (Version 1)
Quarter: 2023Q4

REPORT INFORMATION
  Report Type: Spontaneous
  Country: CN (occurrence: None)
  Receive Date: 20231208
  Receipt Date: 20231208
  Transmission Date: 20240109
  Serious: Yes (Hospitalization)
  Sender: FDA-Public Use
  Company Number: 2023A275250

PATIENT
  Age: 19794 Day
  Sex: Female

DRUGS (2)
  1. GEFITINIB [Suspect]
     Active Substance: GEFITINIB
     Indication: Non-small cell lung cancer
     Route: 048
     Dates: start: 20230728
  2. GEFITINIB [Suspect]
     Active Substance: GEFITINIB
     Indication: Non-small cell lung cancer
     Dosage: 1 DF, EVERY TWO DAYS
     Route: 048
     Dates: start: 20220927, end: 20231030

REACTIONS (7)
  - Skin ulcer [Recovering/Resolving]
  - Palmar-plantar erythrodysaesthesia syndrome [Recovering/Resolving]
  - Chest pain [Unknown]
  - Productive cough [Unknown]
  - Fatigue [Unknown]
  - Haemoptysis [Unknown]
  - Epistaxis [Unknown]

NARRATIVE: CASE EVENT DATE: 20231030
